FAERS Safety Report 4672757-6 (Version None)
Quarter: 2005Q2

REPORT INFORMATION
  Report Type: 
  Country: None (occurrence: None)
  Receive Date: 20050516
  Receipt Date: 20050516
  Transmission Date: 20051028
  Serious: Yes (Hospitalization)
  Sender: FDA-Public Use
  Company Number: None

PATIENT
  Sex: Male

DRUGS (7)
  1. TRILEPTAL [Suspect]
     Indication: AFFECTIVE DISORDER
     Dosage: 600MG PO BID
     Route: 048
     Dates: start: 20040325, end: 20040408
  2. DESYREL [Concomitant]
  3. LAMICTAL [Concomitant]
  4. GEODON [Concomitant]
  5. ZOCOR [Concomitant]
  6. PROTONIX [Concomitant]
  7. ATIVAN [Concomitant]

REACTIONS (1)
  - BLOOD SODIUM DECREASED [None]
